FAERS Safety Report 15430689 (Version 1)
Quarter: 2018Q4

REPORT INFORMATION
  Report Type: Spontaneous
  Country: US (occurrence: US)
  Receive Date: 20180926
  Receipt Date: 20180926
  Transmission Date: 20190204
  Serious: No
  Sender: FDA-Public Use
  Company Number: US-TEVA-2018-US-957141

PATIENT
  Sex: Female

DRUGS (2)
  1. WATSON MODAFINIL [Suspect]
     Active Substance: MODAFINIL
     Route: 065
  2. PROVIGIL [Suspect]
     Active Substance: MODAFINIL
     Route: 065
     Dates: start: 2008

REACTIONS (3)
  - Headache [Unknown]
  - Incorrect dose administered [Unknown]
  - Somnolence [Unknown]

NARRATIVE: CASE EVENT DATE: 2008
